FAERS Safety Report 8869167 (Version 1)
Quarter: 2012Q4

REPORT INFORMATION
  Report Type: Spontaneous
  Country: US (occurrence: None)
  Receive Date: 20121025
  Receipt Date: 20121025
  Transmission Date: 20130627
  Serious: Yes (Other)
  Sender: FDA-Public Use
  Company Number: None

PATIENT
  Age: 66 Year
  Sex: Female
  Weight: 90.72 kg

DRUGS (3)
  1. VORINOSTAT [Suspect]
     Indication: ADENOCARCINOMA OF LUNG
     Dosage: MWF x12weeks
     Route: 048
     Dates: start: 20110106, end: 20110401
  2. CISPLATIN [Concomitant]
  3. PEMETREXED [Concomitant]

REACTIONS (2)
  - B-cell small lymphocytic lymphoma [None]
  - Second primary malignancy [None]
